FAERS Safety Report 7087040-1 (Version None)
Quarter: 2010Q4

REPORT INFORMATION
  Report Type: 
  Country: None (occurrence: None)
  Receive Date: 20101106
  Receipt Date: 20101008
  Transmission Date: 20110411
  Serious: No
  Sender: FDA-Public Use
  Company Number: US-WYE-H18096710

PATIENT
  Age: 69 Year
  Sex: Female
  Weight: 66.74 kg

DRUGS (8)
  1. PREMARIN [Suspect]
     Indication: VAGINAL CYST
     Route: 067
     Dates: start: 20101007
  2. LEXAPRO [Concomitant]
  3. VITAMIN TAB [Concomitant]
  4. VIVELLE [Concomitant]
  5. LISINOPRIL [Concomitant]
  6. HYDROCHLOROTHIAZIDE [Concomitant]
  7. ALENDRONATE SODIUM [Concomitant]
  8. LOVASTATIN [Concomitant]

REACTIONS (3)
  - DIZZINESS [None]
  - LOSS OF CONSCIOUSNESS [None]
  - SOMNOLENCE [None]
